FAERS Safety Report 15979943 (Version 1)
Quarter: 2019Q1

REPORT INFORMATION
  Report Type: Report from Study
  Country: IT (occurrence: IT)
  Receive Date: 20190219
  Receipt Date: 20190219
  Transmission Date: 20190418
  Serious: Yes (Hospitalization)
  Sender: FDA-Public Use
  Company Number: IT-ACCORD-108103

PATIENT
  Age: 40 Year
  Sex: Male

DRUGS (4)
  1. QUETIAPINE. [Suspect]
     Active Substance: QUETIAPINE
     Route: 048
     Dates: start: 20180505, end: 20180505
  2. VALIUM [Suspect]
     Active Substance: DIAZEPAM
     Dosage: 5 MG/ML
     Route: 048
     Dates: start: 20180505, end: 20180505
  3. OLANZAPINE. [Suspect]
     Active Substance: OLANZAPINE
     Route: 048
     Dates: start: 20180505, end: 20180505
  4. RIVOTRIL [Suspect]
     Active Substance: CLONAZEPAM
     Dosage: 2 MG
     Route: 048
     Dates: start: 20180505, end: 20180505

REACTIONS (6)
  - Restlessness [Recovering/Resolving]
  - Psychomotor hyperactivity [Recovering/Resolving]
  - Aggression [Recovering/Resolving]
  - Vomiting [Recovering/Resolving]
  - Tension [Recovering/Resolving]
  - Drug abuse [Unknown]

NARRATIVE: CASE EVENT DATE: 20180505
